FAERS Safety Report 4364912-X (Version None)
Quarter: 2004Q2

REPORT INFORMATION
  Report Type: 
  Country: None (occurrence: None)
  Receive Date: 20040521
  Receipt Date: 20040430
  Transmission Date: 20050107
  Serious: Yes (Death, Hospitalization, Other)
  Sender: FDA-Public Use
  Company Number: US_021190277

PATIENT
  Age: 48 Year
  Sex: Female

DRUGS (5)
  1. ZYPREXA [Suspect]
     Indication: DELUSION
     Dosage: 25 MG DAY
     Dates: start: 19990101
  2. ZYPREXA [Suspect]
     Indication: DEPRESSION
     Dosage: 25 MG DAY
     Dates: start: 19990101
  3. LORAZEPAM [Concomitant]
  4. COUMADIN [Concomitant]
  5. MIRTAZAPINE [Concomitant]

REACTIONS (17)
  - BLOOD BICARBONATE DECREASED [None]
  - BLOOD CHLORIDE DECREASED [None]
  - BLOOD CREATINE PHOSPHOKINASE INCREASED [None]
  - COAGULOPATHY [None]
  - ENCEPHALOPATHY [None]
  - HAEMOGLOBIN DECREASED [None]
  - LETHARGY [None]
  - LEUKOCYTOSIS [None]
  - MENTAL STATUS CHANGES [None]
  - NEUROLEPTIC MALIGNANT SYNDROME [None]
  - PULMONARY EMBOLISM [None]
  - RENAL FAILURE ACUTE [None]
  - RENAL TUBULAR NECROSIS [None]
  - RESPIRATORY FAILURE [None]
  - RHABDOMYOLYSIS [None]
  - THROMBOCYTOPENIA [None]
  - WHITE BLOOD CELL COUNT INCREASED [None]
